FAERS Safety Report 7131246-X (Version None)
Quarter: 2010Q4

REPORT INFORMATION
  Report Type: 
  Country: None (occurrence: None)
  Receive Date: 20101124
  Receipt Date: 20101124
  Transmission Date: 20110411
  Serious: Yes (Life-Threatening)
  Sender: FDA-Public Use
  Company Number: None

PATIENT
  Age: 60 Year
  Sex: Female
  Weight: 83.9154 kg

DRUGS (1)
  1. FENTANYL-100 [Suspect]
     Indication: ARTHRALGIA
     Dosage: 1 PATCH 72 HOURS TRANSDERMAL
     Route: 062
     Dates: start: 20101116, end: 20101120

REACTIONS (12)
  - ASTHENIA [None]
  - DYSPNOEA [None]
  - GAIT DISTURBANCE [None]
  - HEADACHE [None]
  - HYPERTENSION [None]
  - HYPOVENTILATION [None]
  - OEDEMA PERIPHERAL [None]
  - PHARYNGEAL OEDEMA [None]
  - PRURITUS [None]
  - SOMNOLENCE [None]
  - SWELLING FACE [None]
  - WHEEZING [None]
